FAERS Safety Report 7141303-X (Version None)
Quarter: 2010Q4

REPORT INFORMATION
  Report Type: 
  Country: None (occurrence: None)
  Receive Date: 20101203
  Receipt Date: 20101203
  Transmission Date: 20110411
  Serious: No
  Sender: FDA-Public Use
  Company Number: None

PATIENT
  Age: 66 Year
  Sex: Male
  Weight: 97.5234 kg

DRUGS (1)
  1. SIMVASTATIN [Suspect]
     Indication: HYPERLIPIDAEMIA
     Dosage: 40MG 1 PILL EVERY DAY PO
     Route: 048
     Dates: start: 20000101, end: 20100205

REACTIONS (1)
  - AMYOTROPHIC LATERAL SCLEROSIS [None]
